FAERS Safety Report 12857193 (Version 2)
Quarter: 2016Q4

REPORT INFORMATION
  Report Type: Spontaneous
  Country: US (occurrence: US)
  Receive Date: 20161018
  Receipt Date: 20161107
  Transmission Date: 20170207
  Serious: No
  Sender: FDA-Public Use
  Company Number: US-GLAXOSMITHKLINE-US2016GSK152118

PATIENT
  Sex: Female
  Weight: 70.31 kg

DRUGS (9)
  1. PRAVASTATIN TABLET [Concomitant]
  2. SYNTHROID [Concomitant]
     Active Substance: LEVOTHYROXINE SODIUM
  3. METOPROLOL TARTRATE. [Concomitant]
     Active Substance: METOPROLOL TARTRATE
  4. ROPINIROLE. [Suspect]
     Active Substance: ROPINIROLE
     Indication: PARAESTHESIA
     Dosage: UNK, U
     Dates: start: 201609
  5. ROPINIROLE. [Suspect]
     Active Substance: ROPINIROLE
     Indication: NERVOUS SYSTEM DISORDER
  6. VOLTAREN [Suspect]
     Active Substance: DICLOFENAC SODIUM
     Indication: ARTHRITIS
     Dosage: 75 MG, QD
     Dates: start: 2001
  7. ROPINIROLE. [Suspect]
     Active Substance: ROPINIROLE
     Indication: FEELING ABNORMAL
  8. ROPINIROLE. [Suspect]
     Active Substance: ROPINIROLE
     Indication: INSOMNIA
  9. LYRICA [Concomitant]
     Active Substance: PREGABALIN

REACTIONS (5)
  - Abdominal pain upper [Unknown]
  - Product use issue [Unknown]
  - Abdominal discomfort [Unknown]
  - Off label use [Unknown]
  - Drug ineffective for unapproved indication [Unknown]

NARRATIVE: CASE EVENT DATE: 2001
